FAERS Safety Report 15292360 (Version 1)
Quarter: 2018Q3

REPORT INFORMATION
  Report Type: Spontaneous
  Country: US (occurrence: US)
  Receive Date: 20180806
  Receipt Date: 20180806
  Transmission Date: 20181010
  Serious: Yes (Disabling)
  Sender: FDA-Public Use
  Company Number: None

PATIENT
  Age: 67 Year
  Sex: Female
  Weight: 96.3 kg

DRUGS (1)
  1. VALSARTIN [Suspect]
     Active Substance: VALSARTAN
     Indication: HYPERTENSION
     Dosage: ?          QUANTITY:1 TABLET(S);?
     Route: 048
     Dates: start: 20180514, end: 20180730

REACTIONS (3)
  - Gastrointestinal disorder [None]
  - Abdominal discomfort [None]
  - Product quality issue [None]

NARRATIVE: CASE EVENT DATE: 20180630
